FAERS Safety Report 9873241 (Version 2)
Quarter: 2014Q1

REPORT INFORMATION
  Report Type: Other
  Country: US (occurrence: US)
  Receive Date: 20140206
  Receipt Date: 20140206
  Transmission Date: 20141002
  Serious: No
  Sender: FDA-Public Use
  Company Number: US-ACORDA-ACO_100833_2013

PATIENT
  Sex: Female

DRUGS (7)
  1. AMPYRA [Suspect]
     Indication: MULTIPLE SCLEROSIS
     Dosage: 10 MG, Q 12 HRS
     Route: 048
  2. BETASERON [Suspect]
     Indication: PRODUCT USED FOR UNKNOWN INDICATION
     Dosage: UNK, QOD INJECTION
     Route: 003
     Dates: start: 2003, end: 2013
  3. DIMETHYL FUMARATE [Concomitant]
     Indication: MULTIPLE SCLEROSIS
     Dosage: 240 MG, BID
     Route: 065
     Dates: start: 2013
  4. NEURONTIN [Concomitant]
     Indication: PRODUCT USED FOR UNKNOWN INDICATION
     Dosage: 600 MG, TID
     Route: 048
  5. OXYBUTYNIN CHLORIDE [Concomitant]
     Indication: PRODUCT USED FOR UNKNOWN INDICATION
     Dosage: 5 MG, QD
  6. BACLOFEN [Concomitant]
     Indication: PRODUCT USED FOR UNKNOWN INDICATION
     Dosage: 10 MG, TID
  7. SUMATRIPTAN [Concomitant]
     Indication: PRODUCT USED FOR UNKNOWN INDICATION
     Dosage: 100 MG, QD PRN
     Route: 048

REACTIONS (2)
  - Influenza like illness [Recovered/Resolved]
  - Injection site urticaria [Recovered/Resolved]
